FAERS Safety Report 7640687-3 (Version None)
Quarter: 2011Q3

REPORT INFORMATION
  Report Type: 
  Country: None (occurrence: None)
  Receive Date: 20110728
  Receipt Date: 20110718
  Transmission Date: 20111222
  Serious: Yes (Other)
  Sender: FDA-Public Use
  Company Number: US-BAYER-2011-024072

PATIENT
  Age: 18 Year
  Sex: Female
  Weight: 77.098 kg

DRUGS (8)
  1. YAZ [Suspect]
     Indication: CONTRACEPTION
     Dosage: UNK
     Dates: start: 20060127, end: 20060401
  2. ACETAMINOPHEN [Concomitant]
     Indication: PAIN
     Dosage: 500 MG, QD
  3. YASMIN [Suspect]
     Indication: CONTRACEPTION
     Dosage: UNK
     Dates: start: 20040302, end: 20050501
  4. HYDROCODONE/OXYCODONE [Concomitant]
     Indication: PAIN
     Dosage: UNK
     Dates: start: 20060101, end: 20090101
  5. IBUPROFEN [Concomitant]
  6. CYCLOBENZAPRINE [Concomitant]
     Dosage: 5 MG, HS
     Route: 048
  7. COLACE [Concomitant]
     Dosage: TWICE DAILY AS NEEDED
     Route: 048
  8. PERCOCET 5-325 (OXYCODONE/ 5MGAPAP 325MG ) [Concomitant]
     Dosage: 1-2 TABLETS EVERY 4 TO 6 HOURS AS NEEDED
     Route: 048

REACTIONS (6)
  - ABDOMINAL PAIN UPPER [None]
  - PAIN [None]
  - NAUSEA [None]
  - CHOLELITHIASIS [None]
  - FLATULENCE [None]
  - INJURY [None]
